FAERS Safety Report 8136313-X (Version None)
Quarter: 2012Q1

REPORT INFORMATION
  Report Type: 
  Country: None (occurrence: None)
  Receive Date: 20120214
  Receipt Date: 20120208
  Transmission Date: 20120608
  Serious: Yes (Hospitalization, Other)
  Sender: FDA-Public Use
  Company Number: US-ABBOTT-11P-163-0873578-00

PATIENT
  Sex: Female
  Weight: 111.23 kg

DRUGS (19)
  1. NOVOLOG [Concomitant]
     Indication: DIABETES MELLITUS
  2. VYTORIN [Concomitant]
     Indication: BLOOD CHOLESTEROL
  3. PROTONIX [Concomitant]
     Indication: GASTROOESOPHAGEAL REFLUX DISEASE
  4. HUMIRA [Suspect]
     Indication: RHEUMATOID ARTHRITIS
     Route: 058
     Dates: start: 20000101
  5. HUMIRA [Suspect]
     Route: 058
     Dates: start: 20111111
  6. METFORMIN HCL [Concomitant]
     Indication: DIABETES MELLITUS
  7. ASPIRIN [Concomitant]
     Indication: CARDIAC DISORDER
  8. OXYBUTYNIN [Concomitant]
     Indication: HYPERTONIC BLADDER
  9. FLEXERIL [Concomitant]
     Indication: PAIN
  10. METOPROLOL TARTRATE [Concomitant]
     Indication: CARDIAC DISORDER
  11. VITAMIN D [Concomitant]
     Indication: VITAMIN D DEFICIENCY
  12. LANTUS [Concomitant]
     Indication: DIABETES MELLITUS
  13. PLAQUENIL [Concomitant]
     Indication: RHEUMATOID ARTHRITIS
  14. FOLIC ACID [Concomitant]
     Indication: RHEUMATOID ARTHRITIS
  15. DIOVAN HCT [Concomitant]
     Indication: CARDIAC DISORDER
  16. VICODIN [Concomitant]
     Indication: PAIN
  17. METHOTREXATE [Concomitant]
     Indication: RHEUMATOID ARTHRITIS
  18. HYDROCHLOROTHIAZIDE [Concomitant]
     Indication: FLUID RETENTION
  19. CITALOPRAM HYDROBROMIDE [Concomitant]
     Indication: DEPRESSION

REACTIONS (3)
  - PRESYNCOPE [None]
  - CORONARY ARTERY OCCLUSION [None]
  - CARDIAC STRESS TEST ABNORMAL [None]
